FAERS Safety Report 4870849-X (Version None)
Quarter: 2006Q1

REPORT INFORMATION
  Report Type: 
  Country: None (occurrence: None)
  Receive Date: 20060103
  Receipt Date: 20051005
  Transmission Date: 20060701
  Serious: Yes (Hospitalization, Other)
  Sender: FDA-Public Use
  Company Number: US-MERCK-0510USA04761

PATIENT
  Age: 53 Year
  Sex: Male
  Weight: 86 kg

DRUGS (12)
  1. NEXIUM [Concomitant]
     Route: 065
  2. ZESTRIL [Concomitant]
     Route: 065
  3. ASPIRIN [Concomitant]
     Route: 065
  4. ZOLOFT [Concomitant]
     Route: 065
  5. HYDROCHLOROTHIAZIDE AND TRIAMTERENE [Concomitant]
     Route: 065
  6. NITROGLYCERIN [Concomitant]
     Route: 065
  7. VIOXX [Suspect]
     Indication: OSTEOARTHRITIS
     Route: 048
     Dates: start: 20010806, end: 20040901
  8. VIOXX [Suspect]
     Indication: COSTOCHONDRITIS
     Route: 048
     Dates: start: 20010806, end: 20040901
  9. ZOCOR [Concomitant]
     Route: 065
  10. PLAVIX [Concomitant]
     Route: 065
  11. LIPITOR [Concomitant]
     Route: 065
  12. LISINOPRIL [Concomitant]
     Route: 065

REACTIONS (11)
  - ANGINA UNSTABLE [None]
  - CARDIOVASCULAR DISORDER [None]
  - CHEST PAIN [None]
  - DEAFNESS UNILATERAL [None]
  - DEPRESSION [None]
  - MUSCULOSKELETAL CHEST PAIN [None]
  - MYOCARDIAL INFARCTION [None]
  - SPINAL OSTEOARTHRITIS [None]
  - STRESS [None]
  - TYMPANIC MEMBRANE ATROPHIC [None]
  - TYMPANIC MEMBRANE PERFORATION [None]
